FAERS Safety Report 12670821 (Version 1)
Quarter: 2016Q3

REPORT INFORMATION
  Report Type: Spontaneous
  Country: US (occurrence: US)
  Receive Date: 20160822
  Receipt Date: 20160822
  Transmission Date: 20161109
  Serious: No
  Sender: FDA-Public Use
  Company Number: US-JAZZ-JPI-P-015876

PATIENT
  Age: 19 Year
  Sex: Female
  Weight: 52.27 kg

DRUGS (3)
  1. XYREM [Suspect]
     Active Substance: SODIUM OXYBATE
     Dosage: 4.5 G, BID
     Route: 048
     Dates: start: 201110
  2. XYREM [Suspect]
     Active Substance: SODIUM OXYBATE
     Indication: SOMNOLENCE
     Dosage: 3 G, BID
     Route: 048
     Dates: start: 201106, end: 201110
  3. XYREM [Suspect]
     Active Substance: SODIUM OXYBATE
     Indication: NARCOLEPSY
     Dosage: 2.25 G, BID
     Route: 048
     Dates: start: 20110503, end: 201106

REACTIONS (5)
  - Bronchitis [Recovered/Resolved]
  - Abdominal discomfort [Recovered/Resolved]
  - Anxiety [Unknown]
  - Panic attack [Unknown]
  - Substance use [Unknown]

NARRATIVE: CASE EVENT DATE: 20110504
